FAERS Safety Report 5441472-3 (Version None)
Quarter: 2007Q3

REPORT INFORMATION
  Report Type: 
  Country: None (occurrence: None)
  Receive Date: 20070904
  Receipt Date: 20070828
  Transmission Date: 20080115
  Serious: Yes (Death)
  Sender: FDA-Public Use
  Company Number: NL-ELI_LILLY_AND_COMPANY-NL200708006600

PATIENT
  Sex: Female

DRUGS (2)
  1. ZYPREXA [Suspect]
  2. LAMICTAL [Concomitant]

REACTIONS (1)
  - COMPLETED SUICIDE [None]
